FAERS Safety Report 11716876 (Version 6)
Quarter: 2016Q1

REPORT INFORMATION
  Report Type: Spontaneous
  Country: TW (occurrence: TW)
  Receive Date: 20151109
  Receipt Date: 20160203
  Transmission Date: 20160525
  Serious: Yes (Hospitalization, Other)
  Sender: FDA-Public Use
  Company Number: TW-ALEXION PHARMACEUTICALS INC-A201504357

PATIENT
  Age: 70 Year
  Sex: Male
  Weight: 81 kg

DRUGS (6)
  1. PREDNISOLONE. [Suspect]
     Active Substance: PREDNISOLONE
     Indication: PRODUCT USED FOR UNKNOWN INDICATION
     Dosage: 5 MG 2 TABLETS, QD
     Route: 048
  2. SOLIRIS [Suspect]
     Active Substance: ECULIZUMAB
     Dosage: 900 MG, Q2W
     Route: 042
     Dates: start: 201511
  3. SOLIRIS [Suspect]
     Active Substance: ECULIZUMAB
     Indication: PAROXYSMAL NOCTURNAL HAEMOGLOBINURIA
     Dosage: 600 MG, QW X 4 WEEKS
     Route: 042
     Dates: start: 20151021
  4. PREDNISOLONE. [Suspect]
     Active Substance: PREDNISOLONE
     Dosage: 5 MG 1.5 TABLETS, QD
     Route: 048
  5. FLOMOXEF [Concomitant]
     Active Substance: FLOMOXEF
     Indication: INFECTION
     Dosage: 1 G, Q8H
     Route: 048
  6. FLUMARIN                           /00889901/ [Concomitant]
     Indication: PRODUCT USED FOR UNKNOWN INDICATION
     Dosage: 1 G, Q8H
     Route: 042

REACTIONS (9)
  - Platelet count decreased [Not Recovered/Not Resolved]
  - Haemoglobin decreased [Not Recovered/Not Resolved]
  - Bone pain [Recovered/Resolved]
  - Pyrexia [Unknown]
  - Blood lactate dehydrogenase increased [Not Recovered/Not Resolved]
  - Reticulocyte count increased [Unknown]
  - Blood creatinine increased [Not Recovered/Not Resolved]
  - White blood cell count decreased [Recovered/Resolved]
  - Infusion related reaction [Recovered/Resolved]

NARRATIVE: CASE EVENT DATE: 20151029
